FAERS Safety Report 7554507-9 (Version None)
Quarter: 2011Q2

REPORT INFORMATION
  Report Type: 
  Country: None (occurrence: None)
  Receive Date: 20110617
  Receipt Date: 20110609
  Transmission Date: 20111010
  Serious: Yes (Hospitalization)
  Sender: FDA-Public Use
  Company Number: B0725055A

PATIENT
  Sex: Female

DRUGS (16)
  1. BACTRIM [Suspect]
     Dosage: 1UNIT THREE TIMES PER WEEK
     Route: 048
     Dates: start: 20110131, end: 20110213
  2. CLINDAMYCIN HCL [Suspect]
     Indication: TOXOPLASMOSIS
     Dosage: 600MG THREE TIMES PER DAY
     Route: 048
     Dates: start: 20110218, end: 20110222
  3. TERCIAN [Concomitant]
  4. OFLOXACIN [Concomitant]
     Dates: start: 20110213, end: 20110213
  5. STABLON [Concomitant]
  6. VALACYCLOVIR HYDROCHLORIDE [Suspect]
     Dosage: 1000MG PER DAY
     Route: 048
     Dates: start: 20110131, end: 20110221
  7. TARGOCID [Suspect]
     Dosage: 800MG PER DAY
     Route: 042
     Dates: start: 20110214, end: 20110222
  8. FOLIC ACID [Concomitant]
     Dosage: 10MG PER DAY
     Dates: start: 20110131
  9. NEULASTA [Concomitant]
     Route: 042
     Dates: start: 20110212, end: 20110213
  10. GENTAMICIN [Concomitant]
     Dosage: 300MG PER DAY
     Dates: start: 20110214, end: 20110215
  11. TIENAM [Suspect]
     Route: 042
     Dates: start: 20110217, end: 20110223
  12. CACIT D3 [Concomitant]
  13. ACETAMINOPHEN W/ PROPOXYPHENE HCL [Concomitant]
  14. ROCEPHIN [Concomitant]
     Dates: start: 20110213, end: 20110217
  15. CIPROFLOXACIN [Suspect]
     Dosage: 1000MG PER DAY
     Route: 048
     Dates: start: 20110217, end: 20110222
  16. CLADRIBINE [Suspect]
     Dosage: 8.5MG PER DAY
     Route: 058
     Dates: start: 20110207, end: 20110211

REACTIONS (3)
  - LIVER FUNCTION TEST ABNORMAL [None]
  - DRUG ERUPTION [None]
  - DRUG RASH WITH EOSINOPHILIA AND SYSTEMIC SYMPTOMS [None]
